FAERS Safety Report 17968604 (Version 1)
Quarter: 2020Q3

REPORT INFORMATION
  Report Type: Report from Study
  Country: None (occurrence: RO)
  Receive Date: 20200701
  Receipt Date: 20200701
  Transmission Date: 20201103
  Serious: Yes (Hospitalization, Other)
  Sender: FDA-Public Use
  Company Number: RO-ABBVIE-20K-135-3451367-00

PATIENT
  Age: 65 Year
  Sex: Female

DRUGS (1)
  1. DUODOPA [Suspect]
     Active Substance: CARBIDOPA\LEVODOPA
     Indication: PARKINSON^S DISEASE
     Dosage: DM=11.00, DC=7.10, ED=3.00, NRED=2; DMN=0.00, DCN=0.00, EDN=0.00 NREDN=0
     Route: 050
     Dates: start: 20171213, end: 20200617

REACTIONS (8)
  - Intervertebral disc protrusion [Recovering/Resolving]
  - Cognitive disorder [Recovering/Resolving]
  - Intervertebral disc disorder [Recovering/Resolving]
  - Cachexia [Recovering/Resolving]
  - Intentional medical device removal by patient [Unknown]
  - Normochromic normocytic anaemia [Recovering/Resolving]
  - Psychotic disorder [Recovering/Resolving]
  - Hypertension [Recovering/Resolving]

NARRATIVE: CASE EVENT DATE: 20200617
